FAERS Safety Report 16792965 (Version 2)
Quarter: 2019Q4

REPORT INFORMATION
  Report Type: Spontaneous
  Country: US (occurrence: US)
  Receive Date: 20190911
  Receipt Date: 20191018
  Transmission Date: 20200122
  Serious: No
  Sender: FDA-Public Use
  Company Number: US-GLAXOSMITHKLINE-US2019AMR163553

PATIENT
  Sex: Female
  Weight: 129.71 kg

DRUGS (2)
  1. WELLBUTRIN [Suspect]
     Active Substance: BUPROPION HYDROCHLORIDE
     Indication: PRODUCT USED FOR UNKNOWN INDICATION
     Dosage: UNK
     Route: 065
  2. BUPROPION XL [Suspect]
     Active Substance: BUPROPION
     Indication: ADJUSTMENT DISORDER WITH DEPRESSED MOOD
     Dosage: UNK
     Route: 048
     Dates: start: 20171116, end: 20191218

REACTIONS (2)
  - Drug hypersensitivity [Unknown]
  - Feeling jittery [Recovered/Resolved]
